FAERS Safety Report 4362148-X (Version None)
Quarter: 2004Q2

REPORT INFORMATION
  Report Type: 
  Country: None (occurrence: None)
  Receive Date: 20040517
  Receipt Date: 20040503
  Transmission Date: 20050107
  Serious: Yes (Hospitalization)
  Sender: FDA-Public Use
  Company Number: TPA2004A00287

PATIENT
  Age: 55 Year
  Sex: Male

DRUGS (11)
  1. ACTOS [Suspect]
     Indication: DIABETES MELLITUS
     Dosage: PER ORAL
     Route: 048
     Dates: start: 20020101
  2. GLUCOPHAGE [Concomitant]
  3. PREVACID [Concomitant]
  4. LANOXIN [Concomitant]
  5. BUMEX [Concomitant]
  6. LIPITOR [Concomitant]
  7. TRAZODONE HCL [Concomitant]
  8. NEURONTIN [Concomitant]
  9. COREG [Concomitant]
  10. COATED ASPIRIN (ACETYLSALICYLIC ACID) [Concomitant]
  11. COUMADIN [Concomitant]

REACTIONS (8)
  - ANEURYSM [None]
  - DIABETIC RETINAL OEDEMA [None]
  - EMBOLISM [None]
  - FLUID RETENTION [None]
  - MACULAR OEDEMA [None]
  - RENAL FAILURE [None]
  - RETINOPATHY BACKGROUND [None]
  - WEIGHT INCREASED [None]
